FAERS Safety Report 13563815 (Version 11)
Quarter: 2021Q4

REPORT INFORMATION
  Report Type: Spontaneous
  Country: JP (occurrence: JP)
  Receive Date: 20170519
  Receipt Date: 20211014
  Transmission Date: 20220303
  Serious: Yes (Hospitalization, Other)
  Sender: FDA-Public Use
  Company Number: JP-UNITED THERAPEUTICS-UNT-2016-003085

PATIENT
  Age: 37 Year
  Sex: Female
  Weight: 61.5 kg

DRUGS (16)
  1. REMODULIN [Suspect]
     Active Substance: TREPROSTINIL
     Indication: Pulmonary arterial hypertension
     Dosage: 0.0763 ?G/KG, CONTINUING
     Route: 041
     Dates: start: 20160216, end: 201602
  2. REMODULIN [Suspect]
     Active Substance: TREPROSTINIL
     Dosage: UNK, CONTINUING (DOSE DECREASED)
     Route: 041
     Dates: start: 20160219, end: 20160412
  3. REMODULIN [Suspect]
     Active Substance: TREPROSTINIL
     Dosage: 0.0584 ?G/KG, CONTINUING
     Route: 041
     Dates: start: 201604
  4. REMODULIN [Suspect]
     Active Substance: TREPROSTINIL
     Dosage: 0.0937 ?G/KG, CONTINUING
     Route: 041
     Dates: end: 2018
  5. REMODULIN [Suspect]
     Active Substance: TREPROSTINIL
     Dosage: 0.075 ?G/KG, CONTINUING
     Route: 041
     Dates: start: 2018, end: 20180522
  6. LASIX [Concomitant]
     Active Substance: FUROSEMIDE
     Indication: Cardiac failure
     Dosage: 20 MG, QD (PER DAY)
     Route: 048
     Dates: start: 2005
  7. SPIRONOLACTONE [Concomitant]
     Active Substance: SPIRONOLACTONE
     Indication: Cardiac failure
     Dosage: 50 MG, QD (PER DAY)
     Route: 048
     Dates: start: 2005
  8. AZOSEMIDE [Concomitant]
     Active Substance: AZOSEMIDE
     Indication: Cardiac failure
     Dosage: 60 MG, QD (PER DAY)
     Route: 048
     Dates: start: 2005
  9. SAMSCA [Concomitant]
     Active Substance: TOLVAPTAN
     Indication: Cardiac failure
     Dosage: 15 MG, QD (PER DAY)
     Route: 048
     Dates: start: 2015
  10. OPSUMIT [Concomitant]
     Active Substance: MACITENTAN
     Indication: Pulmonary arterial hypertension
     Dosage: 10 MG, QD (PER DAY)
     Route: 048
     Dates: start: 201602
  11. ADEMPAS [Concomitant]
     Active Substance: RIOCIGUAT
     Indication: Pulmonary arterial hypertension
     Dosage: 2.5 MG, Q8H
     Route: 048
     Dates: start: 201603
  12. AMIODARONE HYDROCHLORIDE [Concomitant]
     Active Substance: AMIODARONE HYDROCHLORIDE
     Indication: Atrial fibrillation
     Dosage: 100 MG, QD (PER DAY)
     Route: 048
     Dates: start: 201602
  13. REVATIO [Concomitant]
     Active Substance: SILDENAFIL CITRATE
     Indication: Pulmonary arterial hypertension
     Dosage: UNK
     Route: 048
     Dates: start: 201002, end: 201603
  14. UNIPHYL [Concomitant]
     Active Substance: THEOPHYLLINE ANHYDROUS
     Indication: Asthma
     Dosage: UNK
     Route: 048
     Dates: end: 20160318
  15. SLOW-K [Concomitant]
     Active Substance: POTASSIUM CHLORIDE
     Indication: Hypokalaemia
     Dosage: UNK
     Route: 048
  16. AMBRISENTAN [Concomitant]
     Active Substance: AMBRISENTAN
     Indication: Pulmonary arterial hypertension
     Dosage: UNK
     Route: 048
     Dates: start: 201308, end: 201602

REACTIONS (14)
  - Device related infection [Recovered/Resolved]
  - Vascular device infection [Recovered/Resolved]
  - Haemoptysis [Recovered/Resolved]
  - Atrial fibrillation [Recovered/Resolved]
  - Respiratory failure [Recovered/Resolved]
  - Bacteraemia [Recovered/Resolved]
  - Cardiac failure [Unknown]
  - Pyrexia [Recovered/Resolved]
  - Vascular pain [Recovering/Resolving]
  - Headache [Recovering/Resolving]
  - Arthralgia [Recovering/Resolving]
  - Insomnia [Unknown]
  - Pain [Unknown]
  - Nausea [Unknown]

NARRATIVE: CASE EVENT DATE: 20160101
